APPROVED DRUG PRODUCT: IBUPROFEN AND FAMOTIDINE
Active Ingredient: FAMOTIDINE; IBUPROFEN
Strength: 26.6MG;800MG
Dosage Form/Route: TABLET;ORAL
Application: A215925 | Product #001
Applicant: TORRENT PHARMACEUTICALS LTD
Approved: Mar 18, 2024 | RLD: No | RS: No | Type: DISCN